FAERS Safety Report 7716211-3 (Version None)
Quarter: 2011Q3

REPORT INFORMATION
  Report Type: 
  Country: None (occurrence: None)
  Receive Date: 20110822
  Receipt Date: 20110811
  Transmission Date: 20111222
  Serious: Yes (Other)
  Sender: FDA-Public Use
  Company Number: AUR-APL-2011-04671

PATIENT
  Age: 83 Year
  Sex: Female

DRUGS (3)
  1. RANITIDINE [Suspect]
     Indication: HIATUS HERNIA
     Dosage: (300 MG), UNKNOWN (THERAPY DATES: 23 YEASR AGO - ONGOING)
  2. RANITIDINE [Suspect]
     Indication: GASTROOESOPHAGEAL REFLUX DISEASE
     Dosage: (300 MG), UNKNOWN (THERAPY DATES: 23 YEASR AGO - ONGOING)
  3. NUTRITION SUPPLEMENT [Concomitant]

REACTIONS (2)
  - WEIGHT DECREASED [None]
  - INCREASED UPPER AIRWAY SECRETION [None]
